FAERS Safety Report 24142880 (Version 1)
Quarter: 2024Q3

REPORT INFORMATION
  Report Type: Spontaneous
  Country: EG (occurrence: None)
  Receive Date: 20240726
  Receipt Date: 20240726
  Transmission Date: 20241016
  Serious: Yes (Other)
  Sender: ASTRAZENECA
  Company Number: 2024A168071

PATIENT
  Age: 44 Year
  Sex: Male
  Weight: 85 kg

DRUGS (11)
  1. PULMICORT TURBUHALER [Suspect]
     Active Substance: BUDESONIDE
     Route: 055
     Dates: start: 20240424
  2. ENOXAPARIN SODIUM [Concomitant]
     Active Substance: ENOXAPARIN SODIUM
  3. CEFIDIME [Concomitant]
     Indication: Pulmonary embolism
     Route: 042
     Dates: start: 20240424
  4. CEFIDIME [Concomitant]
     Indication: Deep vein thrombosis
     Route: 042
     Dates: start: 20240424
  5. LEVOFLOXACIN [Concomitant]
     Active Substance: LEVOFLOXACIN
     Indication: Pulmonary embolism
     Route: 042
     Dates: start: 20240424
  6. LEVOFLOXACIN [Concomitant]
     Active Substance: LEVOFLOXACIN
     Indication: Deep vein thrombosis
     Route: 042
     Dates: start: 20240424
  7. ASPIRIN [Concomitant]
     Active Substance: ASPIRIN
     Indication: Pulmonary embolism
     Route: 048
     Dates: start: 20240424
  8. ASPIRIN [Concomitant]
     Active Substance: ASPIRIN
     Indication: Deep vein thrombosis
     Route: 048
     Dates: start: 20240424
  9. CONTORLOC [Concomitant]
     Indication: Pulmonary embolism
     Route: 042
     Dates: start: 20240424
  10. CONTORLOC [Concomitant]
     Indication: Deep vein thrombosis
     Route: 042
     Dates: start: 20240424
  11. ATROVENT [Concomitant]
     Active Substance: IPRATROPIUM BROMIDE
     Route: 055

REACTIONS (2)
  - Heparin-induced thrombocytopenia [Recovered/Resolved]
  - Haemoglobin decreased [Recovered/Resolved]
